FAERS Safety Report 21794549 (Version 1)
Quarter: 2022Q4

REPORT INFORMATION
  Report Type: Report from Study
  Country: TH (occurrence: None)
  Receive Date: 20221229
  Receipt Date: 20221229
  Transmission Date: 20230113
  Serious: Yes (Death, Other)
  Sender: FDA-Public Use
  Company Number: 2022A125599

PATIENT
  Age: 24363 Day
  Sex: Male

DRUGS (3)
  1. TAGRISSO [Suspect]
     Active Substance: OSIMERTINIB
     Indication: Non-small cell lung cancer metastatic
     Route: 048
     Dates: start: 20211227, end: 2022
  2. TAGRISSO [Suspect]
     Active Substance: OSIMERTINIB
     Indication: Non-small cell lung cancer metastatic
     Route: 048
     Dates: start: 20220319
  3. AMOXICILLIN\CLAVULANATE POTASSIUM [Concomitant]
     Active Substance: AMOXICILLIN\CLAVULANATE POTASSIUM
     Indication: Brain neoplasm
     Route: 065

REACTIONS (10)
  - Death [Fatal]
  - Brain neoplasm [Unknown]
  - Wound [Recovered/Resolved]
  - Gingival pain [Recovered/Resolved]
  - Mastication disorder [Recovered/Resolved]
  - Musculoskeletal disorder [Recovering/Resolving]
  - Pyrexia [Not Recovered/Not Resolved]
  - Skin atrophy [Unknown]
  - Neurological symptom [Recovering/Resolving]
  - Off label use [Unknown]

NARRATIVE: CASE EVENT DATE: 20220101
